FAERS Safety Report 7780676-1 (Version None)
Quarter: 2011Q3

REPORT INFORMATION
  Report Type: 
  Country: None (occurrence: None)
  Receive Date: 20110927
  Receipt Date: 20110421
  Transmission Date: 20111222
  Serious: Yes (Other)
  Sender: FDA-Public Use
  Company Number: US-BRISTOL-MYERS SQUIBB COMPANY-15604630

PATIENT
  Sex: Female

DRUGS (2)
  1. AVAPRO [Suspect]
  2. HYDROCHLOROTHIAZIDE [Suspect]

REACTIONS (7)
  - DECREASED APPETITE [None]
  - ASTHENIA [None]
  - BLOOD PRESSURE INADEQUATELY CONTROLLED [None]
  - DEPRESSION [None]
  - FATIGUE [None]
  - SOMNOLENCE [None]
  - CRYING [None]
